FAERS Safety Report 4519047-X (Version None)
Quarter: 2004Q4

REPORT INFORMATION
  Report Type: 
  Country: None (occurrence: None)
  Receive Date: 20041201
  Receipt Date: 20051118
  Transmission Date: 20050328
  Serious: No
  Sender: FDA-Public Use
  Company Number: DE-2004-035478

PATIENT
  Sex: Female

DRUGS (1)
  1. MIRENA [Suspect]
     Dosage: INSERTION UNSUCCESSFUL

REACTIONS (3)
  - DEVICE FAILURE [None]
  - IUCD COMPLICATION [None]
  - PROCEDURAL COMPLICATION [None]
